FAERS Safety Report 23294636 (Version 1)
Quarter: 2023Q4

REPORT INFORMATION
  Report Type: Spontaneous
  Country: US (occurrence: US)
  Receive Date: 20231213
  Receipt Date: 20231213
  Transmission Date: 20240110
  Serious: No
  Sender: FDA-Public Use
  Company Number: US-Calliditas-2023CAL01580

PATIENT
  Age: 27 Year
  Sex: Female

DRUGS (1)
  1. TARPEYO [Suspect]
     Active Substance: BUDESONIDE
     Indication: IgA nephropathy
     Dosage: 16 MG (4 MG CAPSULES) ONCE DAILY
     Route: 048
     Dates: start: 20230508

REACTIONS (16)
  - Weight increased [Unknown]
  - Skin striae [Unknown]
  - Anger [Unknown]
  - Pain [Unknown]
  - Depressed mood [Unknown]
  - Swelling [Unknown]
  - Food craving [Unknown]
  - Cushingoid [Unknown]
  - Lipohypertrophy [Unknown]
  - Acne [Unknown]
  - Hirsutism [Unknown]
  - Hyperaesthesia teeth [Unknown]
  - Asthenia [Unknown]
  - Hyperhidrosis [Recovered/Resolved]
  - Dizziness [Unknown]
  - Emotional distress [Unknown]
